FAERS Safety Report 10404153 (Version 1)
Quarter: 2014Q1

REPORT INFORMATION
  Report Type: Spontaneous
  Country: US (occurrence: None)
  Receive Date: 20130927
  Receipt Date: 20130927
  Transmission Date: 20141002
  Serious: Yes (Hospitalization)
  Sender: FDA-Public Use
  Company Number: RB-52017-2013

PATIENT
  Age: 73 Year
  Sex: Male

DRUGS (9)
  1. SUBOXONE (8 MG, 8 MG) [Suspect]
     Indication: DRUG DEPENDENCE
     Route: 060
     Dates: start: 2013, end: 201305
  2. FISH OIL [Concomitant]
  3. DALIRESP [Concomitant]
  4. TAMSULOSIN [Concomitant]
  5. OMEPRAZOLE [Concomitant]
  6. METOPROLOL [Concomitant]
  7. SPIRIVA [Concomitant]
  8. VITAMINS [Concomitant]
  9. LORAZEPAM [Concomitant]

REACTIONS (3)
  - Anxiety [None]
  - Feeling jittery [None]
  - Drug withdrawal syndrome [None]
